FAERS Safety Report 6478022-9 (Version None)
Quarter: 2009Q4

REPORT INFORMATION
  Report Type: 
  Country: None (occurrence: None)
  Receive Date: 20091207
  Receipt Date: 20091130
  Transmission Date: 20100525
  Serious: Yes (Other)
  Sender: FDA-Public Use
  Company Number: B0611736A

PATIENT
  Sex: Female
  Weight: 86 kg

DRUGS (3)
  1. LAPATINIB [Suspect]
     Indication: BREAST CANCER
     Dosage: 1250MG PER DAY
     Route: 048
  2. MYOCET [Suspect]
     Indication: BREAST CANCER
     Dosage: 112.38MG EVERY 3 WEEKS
     Route: 042
     Dates: start: 20080821
  3. PACLITAXEL [Suspect]
     Indication: BREAST CANCER
     Dosage: 327.77MG EVERY 3 WEEKS
     Route: 042
     Dates: start: 20080821

REACTIONS (2)
  - GRANULOCYTE COUNT DECREASED [None]
  - NEUTROPENIA [None]
